FAERS Safety Report 8134350-2 (Version None)
Quarter: 2012Q1

REPORT INFORMATION
  Report Type: 
  Country: None (occurrence: None)
  Receive Date: 20120209
  Receipt Date: 20120127
  Transmission Date: 20120608
  Serious: Yes (Hospitalization)
  Sender: FDA-Public Use
  Company Number: IMP_05727_2012

PATIENT
  Age: 74 Year
  Sex: Male

DRUGS (2)
  1. METFORMIN HCL [Suspect]
     Indication: TYPE 2 DIABETES MELLITUS
     Dosage: 850 MG, TID
  2. EMTRICITABINE, EFAVIRENZ AND TENOFOVIR [Suspect]
     Indication: HIV INFECTION
     Dosage: DF 300 MG DAILY

REACTIONS (10)
  - ANURIA [None]
  - HEART RATE INCREASED [None]
  - DEHYDRATION [None]
  - BLOOD PRESSURE DECREASED [None]
  - RENAL IMPAIRMENT [None]
  - SKIN TURGOR DECREASED [None]
  - HAEMODIALYSIS [None]
  - MUCOSAL DRYNESS [None]
  - OXYGEN SATURATION DECREASED [None]
  - LACTIC ACIDOSIS [None]
